FAERS Safety Report 19099845 (Version 1)
Quarter: 2021Q2

REPORT INFORMATION
  Report Type: Spontaneous
  Country: TN (occurrence: TN)
  Receive Date: 20210407
  Receipt Date: 20210407
  Transmission Date: 20210717
  Serious: Yes (Hospitalization, Other)
  Sender: FDA-Public Use
  Company Number: TN-LUPIN PHARMACEUTICALS INC.-2021-04283

PATIENT
  Age: 52 Year
  Sex: Male

DRUGS (1)
  1. BETAMETHASONE. [Suspect]
     Active Substance: BETAMETHASONE
     Indication: PSORIASIS
     Dosage: 30 GRAM, QD,DAILY WHOLE BODY APPLICATION OF HIGH?POTENCY CORTICOSTEROID ? BETAMETHASONE DIPROPIONATE
     Route: 061

REACTIONS (4)
  - Adrenal insufficiency [Recovering/Resolving]
  - Rebound psoriasis [Recovering/Resolving]
  - Psoriasis [Recovering/Resolving]
  - Intentional product misuse [Unknown]
